FAERS Safety Report 20665599 (Version 1)
Quarter: 2022Q2

REPORT INFORMATION
  Report Type: Spontaneous
  Country: US (occurrence: US)
  Receive Date: 20220402
  Receipt Date: 20220402
  Transmission Date: 20220720
  Serious: Yes (Death, Hospitalization, Other)
  Sender: FDA-Public Use
  Company Number: US-CELGENE-USA-20220205102

PATIENT
  Sex: Male
  Weight: 28.53 kg

DRUGS (4)
  1. POMALYST [Suspect]
     Active Substance: POMALIDOMIDE
     Indication: Plasma cell myeloma
     Dosage: 4 MILLIGRAM
     Route: 048
     Dates: start: 202103
  2. POMALYST [Suspect]
     Active Substance: POMALIDOMIDE
     Dosage: 2 MILLIGRAM
     Route: 048
     Dates: start: 202104
  3. POMALYST [Suspect]
     Active Substance: POMALIDOMIDE
     Dosage: 3 MILLIGRAM
     Route: 048
     Dates: start: 202107, end: 202201
  4. POMALYST [Suspect]
     Active Substance: POMALIDOMIDE
     Dosage: QUANTITY : 21

REACTIONS (4)
  - Failure to thrive [Fatal]
  - Plasma cell myeloma [Fatal]
  - Cardiomyopathy [Fatal]
  - Chronic kidney disease [Fatal]
